FAERS Safety Report 6333234-X (Version None)
Quarter: 2009Q3

REPORT INFORMATION
  Report Type: 
  Country: None (occurrence: None)
  Receive Date: 20090828
  Receipt Date: 20090826
  Transmission Date: 20100115
  Serious: Yes (Other)
  Sender: FDA-Public Use
  Company Number: US-PFIZER INC-2009225303

PATIENT
  Sex: Male
  Weight: 108.84 kg

DRUGS (9)
  1. TIKOSYN [Suspect]
     Indication: ATRIAL FIBRILLATION
     Dosage: 0.5 MG, 2X/DAY
  2. CELEBREX [Concomitant]
     Dosage: UNK
  3. VYTORIN [Concomitant]
     Dosage: UNK
  4. ATACAND [Concomitant]
     Dosage: UNK
  5. WARFARIN [Concomitant]
     Dosage: UNK
  6. VITAMIN B COMPLEX CAP [Concomitant]
     Dosage: UNK
  7. DIGOXIN [Concomitant]
     Dosage: UNK
  8. POTASSIUM [Concomitant]
     Dosage: UNK
  9. METOPROLOL [Concomitant]
     Dosage: UNK

REACTIONS (1)
  - BLOOD TRIGLYCERIDES INCREASED [None]
